FAERS Safety Report 25844010 (Version 1)
Quarter: 2025Q3

REPORT INFORMATION
  Report Type: Spontaneous
  Country: CA (occurrence: CA)
  Receive Date: 20250925
  Receipt Date: 20250925
  Transmission Date: 20251021
  Serious: Yes (Other)
  Sender: CELLTRION
  Company Number: CA-CELLTRION INC.-2025CA033395

PATIENT

DRUGS (401)
  1. ADALIMUMAB [Suspect]
     Active Substance: ADALIMUMAB
     Indication: Deep vein thrombosis
     Route: 065
  2. ADALIMUMAB [Suspect]
     Active Substance: ADALIMUMAB
     Indication: Crohn^s disease
     Route: 065
  3. ADALIMUMAB [Suspect]
     Active Substance: ADALIMUMAB
     Route: 065
  4. ADALIMUMAB [Suspect]
     Active Substance: ADALIMUMAB
     Route: 065
  5. INFLIXIMAB [Suspect]
     Active Substance: INFLIXIMAB
     Indication: Crohn^s disease
     Route: 065
  6. INFLIXIMAB [Suspect]
     Active Substance: INFLIXIMAB
     Indication: Colitis ulcerative
     Route: 065
  7. INFLIXIMAB [Suspect]
     Active Substance: INFLIXIMAB
     Route: 048
  8. INFLIXIMAB [Suspect]
     Active Substance: INFLIXIMAB
     Route: 048
  9. INFLIXIMAB [Suspect]
     Active Substance: INFLIXIMAB
     Route: 065
  10. INFLIXIMAB [Suspect]
     Active Substance: INFLIXIMAB
     Route: 065
  11. INFLIXIMAB [Suspect]
     Active Substance: INFLIXIMAB
     Route: 048
  12. INFLIXIMAB [Suspect]
     Active Substance: INFLIXIMAB
     Route: 065
  13. INFLIXIMAB [Suspect]
     Active Substance: INFLIXIMAB
     Route: 042
  14. INFLIXIMAB [Suspect]
     Active Substance: INFLIXIMAB
     Route: 042
  15. INFLIXIMAB [Suspect]
     Active Substance: INFLIXIMAB
     Route: 042
  16. INFLIXIMAB [Suspect]
     Active Substance: INFLIXIMAB
     Route: 042
  17. INFLIXIMAB [Suspect]
     Active Substance: INFLIXIMAB
     Route: 042
  18. INFLIXIMAB [Suspect]
     Active Substance: INFLIXIMAB
     Route: 042
  19. INFLIXIMAB [Suspect]
     Active Substance: INFLIXIMAB
     Route: 048
  20. ACETAMINOPHEN [Suspect]
     Active Substance: ACETAMINOPHEN
     Indication: Ill-defined disorder
     Route: 065
  21. ACETAMINOPHEN [Suspect]
     Active Substance: ACETAMINOPHEN
     Route: 065
  22. ACETAMINOPHEN [Suspect]
     Active Substance: ACETAMINOPHEN
     Indication: Ill-defined disorder
     Route: 065
  23. ALBENDAZOLE [Suspect]
     Active Substance: ALBENDAZOLE
     Indication: Deep vein thrombosis
     Route: 042
  24. ALBENDAZOLE [Suspect]
     Active Substance: ALBENDAZOLE
     Indication: Colitis ulcerative
     Route: 042
  25. ALBENDAZOLE [Suspect]
     Active Substance: ALBENDAZOLE
     Route: 042
  26. ALBENDAZOLE [Suspect]
     Active Substance: ALBENDAZOLE
     Route: 042
  27. ALBENDAZOLE [Suspect]
     Active Substance: ALBENDAZOLE
     Route: 042
  28. ALBENDAZOLE [Suspect]
     Active Substance: ALBENDAZOLE
     Route: 042
  29. ALBENDAZOLE [Suspect]
     Active Substance: ALBENDAZOLE
     Route: 042
  30. ALBENDAZOLE [Suspect]
     Active Substance: ALBENDAZOLE
     Route: 042
  31. ALBENDAZOLE [Suspect]
     Active Substance: ALBENDAZOLE
     Route: 042
  32. ALBENDAZOLE [Suspect]
     Active Substance: ALBENDAZOLE
     Route: 048
  33. ALBENDAZOLE [Suspect]
     Active Substance: ALBENDAZOLE
     Route: 042
  34. ALBENDAZOLE [Suspect]
     Active Substance: ALBENDAZOLE
     Route: 042
  35. ALBENDAZOLE [Suspect]
     Active Substance: ALBENDAZOLE
     Route: 042
  36. ALBENDAZOLE [Suspect]
     Active Substance: ALBENDAZOLE
     Route: 042
  37. ALBENDAZOLE [Suspect]
     Active Substance: ALBENDAZOLE
     Route: 042
  38. ASACOL [Suspect]
     Active Substance: MESALAMINE
     Indication: Colitis ulcerative
     Route: 065
  39. ASACOL [Suspect]
     Active Substance: MESALAMINE
     Indication: Colitis ulcerative
     Route: 065
  40. ASACOL [Suspect]
     Active Substance: MESALAMINE
     Route: 065
  41. ASACOL [Suspect]
     Active Substance: MESALAMINE
     Route: 065
  42. ASACOL [Suspect]
     Active Substance: MESALAMINE
     Route: 065
  43. ASACOL [Suspect]
     Active Substance: MESALAMINE
     Route: 065
  44. ASACOL [Suspect]
     Active Substance: MESALAMINE
     Route: 065
  45. ASPIRIN [Suspect]
     Active Substance: ASPIRIN
     Indication: Ill-defined disorder
     Route: 065
  46. ASPIRIN [Suspect]
     Active Substance: ASPIRIN
     Route: 065
  47. ASPIRIN [Suspect]
     Active Substance: ASPIRIN
     Route: 065
  48. ASPIRIN [Suspect]
     Active Substance: ASPIRIN
     Indication: Ill-defined disorder
     Route: 065
  49. BUDESONIDE [Suspect]
     Active Substance: BUDESONIDE
     Indication: Colitis ulcerative
     Route: 048
  50. BUDESONIDE [Suspect]
     Active Substance: BUDESONIDE
     Route: 048
  51. BUDESONIDE [Suspect]
     Active Substance: BUDESONIDE
     Route: 048
  52. BUDESONIDE [Suspect]
     Active Substance: BUDESONIDE
     Route: 048
  53. BUDESONIDE [Suspect]
     Active Substance: BUDESONIDE
     Route: 048
  54. BUDESONIDE [Suspect]
     Active Substance: BUDESONIDE
     Route: 048
  55. BUDESONIDE [Suspect]
     Active Substance: BUDESONIDE
     Route: 048
  56. BUDESONIDE [Suspect]
     Active Substance: BUDESONIDE
     Route: 048
  57. BUDESONIDE [Suspect]
     Active Substance: BUDESONIDE
     Route: 048
  58. BUDESONIDE [Suspect]
     Active Substance: BUDESONIDE
     Route: 048
  59. BUDESONIDE [Suspect]
     Active Substance: BUDESONIDE
     Route: 048
  60. BUDESONIDE [Suspect]
     Active Substance: BUDESONIDE
     Route: 048
  61. BUDESONIDE [Suspect]
     Active Substance: BUDESONIDE
     Route: 048
  62. BUDESONIDE [Suspect]
     Active Substance: BUDESONIDE
     Route: 065
  63. BUDESONIDE [Suspect]
     Active Substance: BUDESONIDE
     Route: 048
  64. BUDESONIDE [Suspect]
     Active Substance: BUDESONIDE
     Route: 048
  65. BUDESONIDE [Suspect]
     Active Substance: BUDESONIDE
     Route: 065
  66. BUDESONIDE [Suspect]
     Active Substance: BUDESONIDE
     Route: 048
  67. BUDESONIDE [Suspect]
     Active Substance: BUDESONIDE
     Route: 048
  68. BUDESONIDE [Suspect]
     Active Substance: BUDESONIDE
     Route: 065
  69. BUDESONIDE [Suspect]
     Active Substance: BUDESONIDE
     Route: 048
  70. BUDESONIDE [Suspect]
     Active Substance: BUDESONIDE
     Route: 065
  71. BUDESONIDE [Suspect]
     Active Substance: BUDESONIDE
     Route: 048
  72. BUDESONIDE [Suspect]
     Active Substance: BUDESONIDE
     Route: 065
  73. BUDESONIDE [Suspect]
     Active Substance: BUDESONIDE
     Route: 048
  74. BUDESONIDE [Suspect]
     Active Substance: BUDESONIDE
     Route: 048
  75. BUDESONIDE [Suspect]
     Active Substance: BUDESONIDE
     Route: 065
  76. BUDESONIDE [Suspect]
     Active Substance: BUDESONIDE
     Route: 048
  77. BUDESONIDE [Suspect]
     Active Substance: BUDESONIDE
     Route: 065
  78. BUDESONIDE [Suspect]
     Active Substance: BUDESONIDE
     Route: 048
  79. BUDESONIDE [Suspect]
     Active Substance: BUDESONIDE
     Route: 065
  80. BUDESONIDE [Suspect]
     Active Substance: BUDESONIDE
     Indication: Colitis ulcerative
     Route: 048
  81. CANDESARTAN [Suspect]
     Active Substance: CANDESARTAN
     Indication: Colitis ulcerative
     Route: 048
  82. AZD-1222 [Suspect]
     Active Substance: AZD-1222
     Indication: COVID-19 immunisation
     Route: 065
  83. AZD-1222 [Suspect]
     Active Substance: AZD-1222
     Route: 065
  84. AZD-1222 [Suspect]
     Active Substance: AZD-1222
     Route: 065
  85. AZD-1222 [Suspect]
     Active Substance: AZD-1222
     Route: 065
  86. AZD-1222 [Suspect]
     Active Substance: AZD-1222
     Route: 065
  87. AZD-1222 [Suspect]
     Active Substance: AZD-1222
     Route: 065
  88. AZD-1222 [Suspect]
     Active Substance: AZD-1222
     Route: 065
  89. AZD-1222 [Suspect]
     Active Substance: AZD-1222
     Route: 065
  90. AZD-1222 [Suspect]
     Active Substance: AZD-1222
     Route: 065
  91. AZD-1222 [Suspect]
     Active Substance: AZD-1222
     Route: 065
  92. AZD-1222 [Suspect]
     Active Substance: AZD-1222
     Route: 065
  93. AZD-1222 [Suspect]
     Active Substance: AZD-1222
     Route: 065
  94. AZD-1222 [Suspect]
     Active Substance: AZD-1222
     Route: 065
  95. AZD-1222 [Suspect]
     Active Substance: AZD-1222
     Route: 065
  96. AZD-1222 [Suspect]
     Active Substance: AZD-1222
     Route: 065
  97. AZD-1222 [Suspect]
     Active Substance: AZD-1222
     Route: 065
  98. AZD-1222 [Suspect]
     Active Substance: AZD-1222
     Route: 065
  99. CHOLECALCIFEROL [Suspect]
     Active Substance: CHOLECALCIFEROL
     Indication: Product used for unknown indication
     Route: 065
  100. CHOLECALCIFEROL [Suspect]
     Active Substance: CHOLECALCIFEROL
     Indication: Product used for unknown indication
     Route: 065
  101. CITALOPRAM HYDROBROMIDE [Suspect]
     Active Substance: CITALOPRAM HYDROBROMIDE
     Indication: Ill-defined disorder
     Route: 065
  102. CITALOPRAM HYDROBROMIDE [Suspect]
     Active Substance: CITALOPRAM HYDROBROMIDE
     Route: 065
  103. CITALOPRAM HYDROBROMIDE [Suspect]
     Active Substance: CITALOPRAM HYDROBROMIDE
     Route: 065
  104. CITALOPRAM HYDROBROMIDE [Suspect]
     Active Substance: CITALOPRAM HYDROBROMIDE
     Route: 065
  105. COMIRNATY (TOZINAMERAN) [Suspect]
     Active Substance: TOZINAMERAN
     Indication: Product used for unknown indication
     Route: 065
  106. COMIRNATY (TOZINAMERAN) [Suspect]
     Active Substance: TOZINAMERAN
     Route: 065
  107. CORTIFOAM [Suspect]
     Active Substance: HYDROCORTISONE ACETATE
     Indication: Colitis ulcerative
     Route: 065
  108. CORTIFOAM [Suspect]
     Active Substance: HYDROCORTISONE ACETATE
     Indication: Colitis ulcerative
     Route: 065
  109. CORTIFOAM [Suspect]
     Active Substance: HYDROCORTISONE ACETATE
     Route: 065
  110. CORTIFOAM [Suspect]
     Active Substance: HYDROCORTISONE ACETATE
     Route: 065
  111. CORTIFOAM [Suspect]
     Active Substance: HYDROCORTISONE ACETATE
     Route: 065
  112. CORTIFOAM [Suspect]
     Active Substance: HYDROCORTISONE ACETATE
     Route: 065
  113. CORTIFOAM [Suspect]
     Active Substance: HYDROCORTISONE ACETATE
     Route: 065
  114. BUDESONIDE [Suspect]
     Active Substance: BUDESONIDE
     Indication: Product used for unknown indication
     Route: 048
  115. BUDESONIDE [Suspect]
     Active Substance: BUDESONIDE
     Route: 048
  116. BUDESONIDE [Suspect]
     Active Substance: BUDESONIDE
     Route: 065
  117. BUDESONIDE [Suspect]
     Active Substance: BUDESONIDE
     Route: 065
  118. BUDESONIDE [Suspect]
     Active Substance: BUDESONIDE
     Route: 048
  119. BUDESONIDE [Suspect]
     Active Substance: BUDESONIDE
     Route: 048
  120. BUDESONIDE [Suspect]
     Active Substance: BUDESONIDE
     Route: 048
  121. BUDESONIDE [Suspect]
     Active Substance: BUDESONIDE
     Route: 048
  122. BUDESONIDE [Suspect]
     Active Substance: BUDESONIDE
     Route: 048
  123. BUDESONIDE [Suspect]
     Active Substance: BUDESONIDE
     Route: 048
  124. BUDESONIDE [Suspect]
     Active Substance: BUDESONIDE
     Route: 048
  125. BUDESONIDE [Suspect]
     Active Substance: BUDESONIDE
     Indication: Product used for unknown indication
     Route: 065
  126. DAPAGLIFLOZIN [Suspect]
     Active Substance: DAPAGLIFLOZIN
     Indication: Ill-defined disorder
     Route: 065
  127. DAPAGLIFLOZIN [Suspect]
     Active Substance: DAPAGLIFLOZIN
     Indication: Cardiac failure chronic
  128. DAPAGLIFLOZIN [Suspect]
     Active Substance: DAPAGLIFLOZIN
     Indication: Ill-defined disorder
     Route: 065
  129. DAPAGLIFLOZIN [Suspect]
     Active Substance: DAPAGLIFLOZIN
     Indication: Cardiac failure chronic
  130. DESOXIMETASONE [Suspect]
     Active Substance: DESOXIMETASONE
     Indication: Crohn^s disease
     Route: 048
  131. DESOXIMETASONE [Suspect]
     Active Substance: DESOXIMETASONE
     Indication: Colitis ulcerative
     Route: 065
  132. DESOXIMETASONE [Suspect]
     Active Substance: DESOXIMETASONE
     Indication: Crohn^s disease
     Route: 065
  133. DESOXIMETASONE [Suspect]
     Active Substance: DESOXIMETASONE
     Indication: Colitis ulcerative
     Dosage: 8 MILLIGRAM, 1 EVERY 1 WEEKS
     Route: 065
  134. DESOXIMETASONE [Suspect]
     Active Substance: DESOXIMETASONE
     Dosage: 6 MILLIGRAM, 1 EVERY 1 WEEKS
     Route: 065
  135. DESOXIMETASONE [Suspect]
     Active Substance: DESOXIMETASONE
     Dosage: 8 MILLIGRAM, 1 EVERY 1 WEEKS
     Route: 065
  136. DESOXIMETASONE [Suspect]
     Active Substance: DESOXIMETASONE
     Route: 065
  137. DESOXIMETASONE [Suspect]
     Active Substance: DESOXIMETASONE
     Route: 065
  138. DESOXIMETASONE [Suspect]
     Active Substance: DESOXIMETASONE
     Route: 065
  139. DESOXIMETASONE [Suspect]
     Active Substance: DESOXIMETASONE
     Route: 065
  140. DESOXIMETASONE [Suspect]
     Active Substance: DESOXIMETASONE
     Route: 048
  141. DESOXIMETASONE [Suspect]
     Active Substance: DESOXIMETASONE
     Route: 048
  142. DESOXIMETASONE [Suspect]
     Active Substance: DESOXIMETASONE
     Route: 048
  143. ENTYVIO [Suspect]
     Active Substance: VEDOLIZUMAB
     Indication: Deep vein thrombosis
     Route: 065
  144. ENTYVIO [Suspect]
     Active Substance: VEDOLIZUMAB
     Indication: Colitis ulcerative
     Route: 048
  145. ENTYVIO [Suspect]
     Active Substance: VEDOLIZUMAB
     Route: 042
  146. ENTYVIO [Suspect]
     Active Substance: VEDOLIZUMAB
     Route: 065
  147. ENTYVIO [Suspect]
     Active Substance: VEDOLIZUMAB
     Route: 042
  148. ENTYVIO [Suspect]
     Active Substance: VEDOLIZUMAB
     Route: 048
  149. ENTYVIO [Suspect]
     Active Substance: VEDOLIZUMAB
     Route: 048
  150. ENTYVIO [Suspect]
     Active Substance: VEDOLIZUMAB
     Indication: Deep vein thrombosis
     Route: 065
  151. ENTYVIO [Suspect]
     Active Substance: VEDOLIZUMAB
     Indication: Colitis ulcerative
  152. EPINEPHRINE [Suspect]
     Active Substance: EPINEPHRINE
     Indication: Product used for unknown indication
     Route: 065
  153. ESCITALOPRAM [Suspect]
     Active Substance: ESCITALOPRAM OXALATE
     Indication: Product used for unknown indication
     Route: 065
  154. ESCITALOPRAM [Suspect]
     Active Substance: ESCITALOPRAM OXALATE
     Route: 065
  155. ESOMEPRAZOLE MAGNESIUM [Suspect]
     Active Substance: ESOMEPRAZOLE MAGNESIUM
     Indication: Gastritis
     Route: 065
  156. FELODIPINE [Suspect]
     Active Substance: FELODIPINE
     Indication: Hypertension
     Route: 048
  157. FELODIPINE [Suspect]
     Active Substance: FELODIPINE
     Route: 048
  158. FELODIPINE [Suspect]
     Active Substance: FELODIPINE
     Indication: Hypertension
     Route: 048
  159. FUROSEMIDE [Suspect]
     Active Substance: FUROSEMIDE
     Indication: Product used for unknown indication
     Route: 065
  160. FUROSEMIDE [Suspect]
     Active Substance: FUROSEMIDE
     Indication: Product used for unknown indication
     Route: 065
  161. GABAPENTIN [Suspect]
     Active Substance: GABAPENTIN
     Indication: Product used for unknown indication
     Route: 065
  162. GABAPENTIN [Suspect]
     Active Substance: GABAPENTIN
     Indication: Product used for unknown indication
     Route: 065
  163. HUMIRA [Suspect]
     Active Substance: ADALIMUMAB
     Indication: Crohn^s disease
     Route: 065
  164. HUMIRA [Suspect]
     Active Substance: ADALIMUMAB
     Route: 065
  165. HUMIRA [Suspect]
     Active Substance: ADALIMUMAB
     Route: 065
  166. HUMIRA [Suspect]
     Active Substance: ADALIMUMAB
     Route: 065
  167. HUMIRA [Suspect]
     Active Substance: ADALIMUMAB
     Indication: Crohn^s disease
     Route: 065
  168. HYDROCORTISONE [Suspect]
     Active Substance: HYDROCORTISONE
     Indication: Crohn^s disease
     Route: 048
  169. HYDROCORTISONE [Suspect]
     Active Substance: HYDROCORTISONE
     Indication: Colitis ulcerative
     Route: 042
  170. HYDROCORTISONE [Suspect]
     Active Substance: HYDROCORTISONE
     Route: 065
  171. HYDROCORTISONE [Suspect]
     Active Substance: HYDROCORTISONE
     Route: 065
  172. HYDROCORTISONE [Suspect]
     Active Substance: HYDROCORTISONE
     Route: 065
  173. HYDROCORTISONE [Suspect]
     Active Substance: HYDROCORTISONE
     Route: 065
  174. HYDROCORTISONE [Suspect]
     Active Substance: HYDROCORTISONE
     Route: 065
  175. HYDROCORTISONE [Suspect]
     Active Substance: HYDROCORTISONE
     Route: 065
  176. HYDROCORTISONE [Suspect]
     Active Substance: HYDROCORTISONE
     Route: 048
  177. HYDROCORTISONE [Suspect]
     Active Substance: HYDROCORTISONE
     Route: 048
  178. HYDROCORTISONE [Suspect]
     Active Substance: HYDROCORTISONE
     Route: 048
  179. HYDROCORTISONE [Suspect]
     Active Substance: HYDROCORTISONE
     Route: 048
  180. HYDROCORTISONE [Suspect]
     Active Substance: HYDROCORTISONE
     Indication: Crohn^s disease
     Route: 065
  181. HYDROCORTISONE [Suspect]
     Active Substance: HYDROCORTISONE
     Indication: Colitis ulcerative
     Route: 048
  182. HYDROCORTISONE [Suspect]
     Active Substance: HYDROCORTISONE
     Indication: Crohn^s disease
     Route: 048
  183. HYDROCORTISONE [Suspect]
     Active Substance: HYDROCORTISONE
     Indication: Colitis ulcerative
     Route: 065
  184. HYDROCORTISONE [Suspect]
     Active Substance: HYDROCORTISONE
     Route: 065
  185. HYDROCORTISONE [Suspect]
     Active Substance: HYDROCORTISONE
     Route: 048
  186. HYDROCORTISONE [Suspect]
     Active Substance: HYDROCORTISONE
     Route: 065
  187. HYDROCORTISONE [Suspect]
     Active Substance: HYDROCORTISONE
     Route: 048
  188. HYDROCORTISONE [Suspect]
     Active Substance: HYDROCORTISONE
     Route: 048
  189. HYDROCORTISONE [Suspect]
     Active Substance: HYDROCORTISONE
     Route: 065
  190. HYDROCORTISONE [Suspect]
     Active Substance: HYDROCORTISONE
     Route: 048
  191. HYDROCORTISONE [Suspect]
     Active Substance: HYDROCORTISONE
     Route: 065
  192. HYDROCORTISONE [Suspect]
     Active Substance: HYDROCORTISONE
     Route: 048
  193. INFLIXIMAB [Suspect]
     Active Substance: INFLIXIMAB
     Indication: Crohn^s disease
     Route: 065
  194. INFLIXIMAB [Suspect]
     Active Substance: INFLIXIMAB
     Indication: Colitis ulcerative
  195. INFLIXIMAB [Suspect]
     Active Substance: INFLIXIMAB
     Indication: Crohn^s disease
     Route: 065
  196. INFLIXIMAB [Suspect]
     Active Substance: INFLIXIMAB
     Indication: Colitis ulcerative
     Route: 065
  197. INFLIXIMAB [Suspect]
     Active Substance: INFLIXIMAB
     Route: 065
  198. INFLIXIMAB [Suspect]
     Active Substance: INFLIXIMAB
     Route: 065
  199. INFLIXIMAB [Suspect]
     Active Substance: INFLIXIMAB
     Indication: Crohn^s disease
     Route: 042
  200. INFLIXIMAB [Suspect]
     Active Substance: INFLIXIMAB
     Indication: Colitis ulcerative
     Route: 065
  201. INFLIXIMAB [Suspect]
     Active Substance: INFLIXIMAB
     Route: 065
  202. INFLIXIMAB [Suspect]
     Active Substance: INFLIXIMAB
     Route: 048
  203. LEVOTHYROXINE SODIUM [Suspect]
     Active Substance: LEVOTHYROXINE SODIUM
     Indication: Product used for unknown indication
     Route: 065
  204. LEVOTHYROXINE SODIUM [Suspect]
     Active Substance: LEVOTHYROXINE SODIUM
     Indication: Product used for unknown indication
     Route: 065
  205. LISDEXAMFETAMINE DIMESYLATE [Suspect]
     Active Substance: LISDEXAMFETAMINE DIMESYLATE
     Indication: Product used for unknown indication
     Route: 065
  206. LISDEXAMFETAMINE DIMESYLATE [Suspect]
     Active Substance: LISDEXAMFETAMINE DIMESYLATE
     Route: 065
  207. LISDEXAMFETAMINE DIMESYLATE [Suspect]
     Active Substance: LISDEXAMFETAMINE DIMESYLATE
     Indication: Product used for unknown indication
     Route: 065
  208. LISDEXAMFETAMINE DIMESYLATE [Suspect]
     Active Substance: LISDEXAMFETAMINE DIMESYLATE
     Route: 065
  209. LISDEXAMFETAMINE DIMESYLATE [Suspect]
     Active Substance: LISDEXAMFETAMINE DIMESYLATE
     Route: 065
  210. LISDEXAMFETAMINE DIMESYLATE [Suspect]
     Active Substance: LISDEXAMFETAMINE DIMESYLATE
     Route: 065
  211. LISDEXAMFETAMINE DIMESYLATE [Suspect]
     Active Substance: LISDEXAMFETAMINE DIMESYLATE
     Route: 065
  212. MEBEVERINE HYDROCHLORIDE [Suspect]
     Active Substance: MEBEVERINE HYDROCHLORIDE
     Indication: Product used for unknown indication
     Route: 065
  213. MEBEVERINE HYDROCHLORIDE [Suspect]
     Active Substance: MEBEVERINE HYDROCHLORIDE
     Route: 065
  214. MEBEVERINE HYDROCHLORIDE [Suspect]
     Active Substance: MEBEVERINE HYDROCHLORIDE
     Route: 065
  215. MEBEVERINE HYDROCHLORIDE [Suspect]
     Active Substance: MEBEVERINE HYDROCHLORIDE
     Route: 065
  216. MESALAMINE [Suspect]
     Active Substance: MESALAMINE
     Indication: Colitis ulcerative
     Route: 065
  217. MESALAMINE [Suspect]
     Active Substance: MESALAMINE
     Indication: Colitis ulcerative
     Route: 065
  218. MESALAMINE [Suspect]
     Active Substance: MESALAMINE
     Route: 065
  219. MESALAMINE [Suspect]
     Active Substance: MESALAMINE
     Route: 048
  220. MESALAMINE [Suspect]
     Active Substance: MESALAMINE
     Route: 065
  221. MESALAMINE [Suspect]
     Active Substance: MESALAMINE
     Route: 048
  222. MESALAMINE [Suspect]
     Active Substance: MESALAMINE
     Route: 048
  223. MESALAMINE [Suspect]
     Active Substance: MESALAMINE
     Route: 065
  224. MESALAMINE [Suspect]
     Active Substance: MESALAMINE
     Route: 048
  225. MESALAMINE [Suspect]
     Active Substance: MESALAMINE
     Route: 065
  226. MESALAMINE [Suspect]
     Active Substance: MESALAMINE
     Route: 065
  227. MESALAMINE [Suspect]
     Active Substance: MESALAMINE
     Route: 065
  228. MESALAMINE [Suspect]
     Active Substance: MESALAMINE
     Route: 065
  229. MESALAMINE [Suspect]
     Active Substance: MESALAMINE
     Route: 065
  230. MESALAMINE [Suspect]
     Active Substance: MESALAMINE
     Route: 065
  231. MESALAMINE [Suspect]
     Active Substance: MESALAMINE
     Route: 065
  232. MESALAMINE [Suspect]
     Active Substance: MESALAMINE
     Route: 048
  233. MESALAMINE [Suspect]
     Active Substance: MESALAMINE
     Route: 065
  234. MESALAMINE [Suspect]
     Active Substance: MESALAMINE
     Route: 065
  235. MESALAMINE [Suspect]
     Active Substance: MESALAMINE
     Route: 065
  236. MESALAMINE [Suspect]
     Active Substance: MESALAMINE
     Route: 065
  237. MESALAMINE [Suspect]
     Active Substance: MESALAMINE
     Route: 065
  238. MESALAMINE [Suspect]
     Active Substance: MESALAMINE
     Route: 048
  239. MESALAMINE [Suspect]
     Active Substance: MESALAMINE
     Route: 065
  240. MESALAMINE [Suspect]
     Active Substance: MESALAMINE
     Route: 048
  241. MESALAMINE [Suspect]
     Active Substance: MESALAMINE
     Route: 065
  242. MESALAMINE [Suspect]
     Active Substance: MESALAMINE
     Route: 065
  243. MESALAMINE [Suspect]
     Active Substance: MESALAMINE
     Route: 065
  244. MESALAMINE [Suspect]
     Active Substance: MESALAMINE
     Route: 065
  245. MESALAMINE [Suspect]
     Active Substance: MESALAMINE
     Route: 065
  246. MESALAMINE [Suspect]
     Active Substance: MESALAMINE
     Route: 065
  247. MESALAMINE [Suspect]
     Active Substance: MESALAMINE
     Route: 065
  248. MESALAMINE [Suspect]
     Active Substance: MESALAMINE
     Route: 065
  249. MESALAMINE [Suspect]
     Active Substance: MESALAMINE
     Route: 065
  250. MESALAMINE [Suspect]
     Active Substance: MESALAMINE
     Route: 065
  251. MESALAMINE [Suspect]
     Active Substance: MESALAMINE
     Route: 048
  252. MESALAMINE [Suspect]
     Active Substance: MESALAMINE
     Route: 065
  253. MESALAMINE [Suspect]
     Active Substance: MESALAMINE
     Route: 065
  254. MESALAMINE [Suspect]
     Active Substance: MESALAMINE
     Route: 065
  255. MESALAMINE [Suspect]
     Active Substance: MESALAMINE
     Route: 065
  256. MESALAMINE [Suspect]
     Active Substance: MESALAMINE
     Route: 065
  257. MESALAMINE [Suspect]
     Active Substance: MESALAMINE
     Route: 048
  258. MESALAMINE [Suspect]
     Active Substance: MESALAMINE
     Route: 048
  259. MESALAMINE [Suspect]
     Active Substance: MESALAMINE
     Route: 048
  260. MESALAMINE [Suspect]
     Active Substance: MESALAMINE
     Route: 048
  261. MESALAMINE [Suspect]
     Active Substance: MESALAMINE
     Route: 048
  262. MESALAMINE [Suspect]
     Active Substance: MESALAMINE
     Route: 048
  263. MESALAMINE [Suspect]
     Active Substance: MESALAMINE
     Route: 048
  264. MESALAMINE [Suspect]
     Active Substance: MESALAMINE
     Route: 065
  265. MESALAMINE [Suspect]
     Active Substance: MESALAMINE
     Route: 065
  266. METFORMIN [Suspect]
     Active Substance: METFORMIN HYDROCHLORIDE
     Indication: Product used for unknown indication
     Route: 065
  267. METFORMIN [Suspect]
     Active Substance: METFORMIN HYDROCHLORIDE
     Indication: Product used for unknown indication
     Route: 065
  268. MESALAMINE [Suspect]
     Active Substance: MESALAMINE
     Indication: Colitis ulcerative
     Route: 048
  269. MESALAMINE [Suspect]
     Active Substance: MESALAMINE
     Route: 048
  270. MESALAMINE [Suspect]
     Active Substance: MESALAMINE
     Route: 048
  271. MESALAMINE [Suspect]
     Active Substance: MESALAMINE
     Indication: Colitis ulcerative
     Route: 048
  272. MESALAMINE [Suspect]
     Active Substance: MESALAMINE
     Route: 048
  273. MESALAMINE [Suspect]
     Active Substance: MESALAMINE
     Route: 048
  274. MESALAMINE [Suspect]
     Active Substance: MESALAMINE
     Route: 048
  275. MESALAMINE [Suspect]
     Active Substance: MESALAMINE
     Route: 048
  276. MESALAMINE [Suspect]
     Active Substance: MESALAMINE
     Route: 048
  277. MESALAMINE [Suspect]
     Active Substance: MESALAMINE
     Route: 048
  278. MESALAMINE [Suspect]
     Active Substance: MESALAMINE
     Route: 048
  279. MESALAMINE [Suspect]
     Active Substance: MESALAMINE
     Route: 065
  280. MESALAMINE [Suspect]
     Active Substance: MESALAMINE
     Route: 065
  281. MESALAMINE [Suspect]
     Active Substance: MESALAMINE
     Route: 065
  282. MESALAMINE [Suspect]
     Active Substance: MESALAMINE
     Route: 065
  283. MESALAMINE [Suspect]
     Active Substance: MESALAMINE
     Route: 065
  284. MESALAMINE [Suspect]
     Active Substance: MESALAMINE
     Route: 048
  285. MESALAMINE [Suspect]
     Active Substance: MESALAMINE
     Route: 065
  286. MESALAMINE [Suspect]
     Active Substance: MESALAMINE
     Route: 065
  287. MESALAMINE [Suspect]
     Active Substance: MESALAMINE
     Route: 065
  288. MESALAMINE [Suspect]
     Active Substance: MESALAMINE
     Route: 065
  289. MESALAMINE [Suspect]
     Active Substance: MESALAMINE
     Route: 065
  290. MESALAMINE [Suspect]
     Active Substance: MESALAMINE
     Route: 065
  291. MESALAMINE [Suspect]
     Active Substance: MESALAMINE
     Route: 065
  292. MESALAMINE [Suspect]
     Active Substance: MESALAMINE
     Route: 065
  293. MESALAMINE [Suspect]
     Active Substance: MESALAMINE
     Route: 065
  294. MESALAMINE [Suspect]
     Active Substance: MESALAMINE
     Route: 065
  295. MESALAMINE [Suspect]
     Active Substance: MESALAMINE
     Route: 065
  296. MESALAMINE [Suspect]
     Active Substance: MESALAMINE
     Route: 048
  297. MESALAMINE [Suspect]
     Active Substance: MESALAMINE
     Route: 048
  298. MESALAMINE [Suspect]
     Active Substance: MESALAMINE
     Route: 048
  299. MESALAMINE [Suspect]
     Active Substance: MESALAMINE
     Route: 065
  300. MESALAMINE [Suspect]
     Active Substance: MESALAMINE
     Indication: Colitis ulcerative
     Route: 048
  301. MESALAMINE [Suspect]
     Active Substance: MESALAMINE
     Indication: Colitis ulcerative
     Route: 048
  302. OMEPRAZOLE [Suspect]
     Active Substance: OMEPRAZOLE
     Indication: Product used for unknown indication
     Route: 065
  303. OMEPRAZOLE [Suspect]
     Active Substance: OMEPRAZOLE
     Indication: Product used for unknown indication
     Route: 065
  304. OMEPRAZOLE [Suspect]
     Active Substance: OMEPRAZOLE
     Route: 065
  305. OMEPRAZOLE [Suspect]
     Active Substance: OMEPRAZOLE
     Route: 065
  306. OXYCODONE [Suspect]
     Active Substance: OXYCODONE
     Indication: Product used for unknown indication
     Route: 065
  307. PARA-AMINOSALICYLIC ACID [Suspect]
     Active Substance: AMINOSALICYLIC ACID
     Indication: Deep vein thrombosis
     Route: 065
  308. PARA-AMINOSALICYLIC ACID [Suspect]
     Active Substance: AMINOSALICYLIC ACID
     Indication: Colitis ulcerative
     Route: 065
  309. PREDNISONE [Suspect]
     Active Substance: PREDNISONE
     Indication: Colitis ulcerative
     Route: 065
  310. PREDNISONE [Suspect]
     Active Substance: PREDNISONE
     Indication: Colitis ulcerative
     Route: 065
  311. PREDNISONE [Suspect]
     Active Substance: PREDNISONE
     Route: 065
  312. PREDNISONE [Suspect]
     Active Substance: PREDNISONE
     Route: 065
  313. PREDNISONE [Suspect]
     Active Substance: PREDNISONE
     Route: 065
  314. PREDNISONE [Suspect]
     Active Substance: PREDNISONE
     Route: 065
  315. REMICADE [Suspect]
     Active Substance: INFLIXIMAB
     Indication: Crohn^s disease
     Route: 065
  316. REMICADE [Suspect]
     Active Substance: INFLIXIMAB
     Indication: Colitis ulcerative
     Route: 065
  317. REMICADE [Suspect]
     Active Substance: INFLIXIMAB
     Route: 065
  318. REMICADE [Suspect]
     Active Substance: INFLIXIMAB
     Indication: Crohn^s disease
     Route: 065
  319. REMICADE [Suspect]
     Active Substance: INFLIXIMAB
     Indication: Colitis ulcerative
  320. ROSUVASTATIN [Suspect]
     Active Substance: ROSUVASTATIN
     Indication: Blood cholesterol increased
     Route: 065
  321. ROSUVASTATIN [Suspect]
     Active Substance: ROSUVASTATIN
     Indication: Blood cholesterol increased
     Route: 065
  322. ROSUVASTATIN [Suspect]
     Active Substance: ROSUVASTATIN
     Route: 065
  323. ROSUVASTATIN CALCIUM [Suspect]
     Active Substance: ROSUVASTATIN CALCIUM
     Indication: Ill-defined disorder
     Route: 065
  324. ROSUVASTATIN CALCIUM [Suspect]
     Active Substance: ROSUVASTATIN CALCIUM
     Indication: Blood cholesterol increased
     Route: 065
  325. ROSUVASTATIN CALCIUM [Suspect]
     Active Substance: ROSUVASTATIN CALCIUM
     Route: 065
  326. ROSUVASTATIN CALCIUM [Suspect]
     Active Substance: ROSUVASTATIN CALCIUM
     Route: 065
  327. ROSUVASTATIN CALCIUM [Suspect]
     Active Substance: ROSUVASTATIN CALCIUM
     Route: 065
  328. ROSUVASTATIN CALCIUM [Suspect]
     Active Substance: ROSUVASTATIN CALCIUM
     Route: 065
  329. ROSUVASTATIN CALCIUM [Suspect]
     Active Substance: ROSUVASTATIN CALCIUM
     Route: 065
  330. ROSUVASTATIN CALCIUM [Suspect]
     Active Substance: ROSUVASTATIN CALCIUM
     Route: 065
  331. ROSUVASTATIN CALCIUM [Suspect]
     Active Substance: ROSUVASTATIN CALCIUM
     Route: 065
  332. ROSUVASTATIN CALCIUM [Suspect]
     Active Substance: ROSUVASTATIN CALCIUM
     Route: 065
  333. MESALAMINE [Suspect]
     Active Substance: MESALAMINE
     Indication: Product used for unknown indication
     Route: 048
  334. TOZINAMERAN [Suspect]
     Active Substance: TOZINAMERAN
     Indication: Product used for unknown indication
     Route: 065
  335. VYVANSE [Suspect]
     Active Substance: LISDEXAMFETAMINE DIMESYLATE
     Indication: Attention deficit hyperactivity disorder
     Route: 065
  336. WARFARIN [Suspect]
     Active Substance: WARFARIN
     Indication: Deep vein thrombosis
     Route: 065
  337. WARFARIN [Suspect]
     Active Substance: WARFARIN
     Indication: Colitis ulcerative
     Route: 065
  338. WARFARIN [Suspect]
     Active Substance: WARFARIN
     Route: 065
  339. WARFARIN [Suspect]
     Active Substance: WARFARIN
     Route: 065
  340. WARFARIN [Suspect]
     Active Substance: WARFARIN
     Route: 065
  341. WARFARIN [Suspect]
     Active Substance: WARFARIN
     Route: 065
  342. WARFARIN SODIUM [Suspect]
     Active Substance: WARFARIN SODIUM
     Indication: Deep vein thrombosis
     Route: 048
  343. WARFARIN SODIUM [Suspect]
     Active Substance: WARFARIN SODIUM
     Indication: Colitis ulcerative
     Route: 048
  344. WARFARIN SODIUM [Suspect]
     Active Substance: WARFARIN SODIUM
     Route: 048
  345. WARFARIN SODIUM [Suspect]
     Active Substance: WARFARIN SODIUM
     Route: 048
  346. WARFARIN SODIUM [Suspect]
     Active Substance: WARFARIN SODIUM
     Route: 065
  347. WARFARIN SODIUM [Suspect]
     Active Substance: WARFARIN SODIUM
     Route: 048
  348. WARFARIN SODIUM [Suspect]
     Active Substance: WARFARIN SODIUM
     Route: 048
  349. WARFARIN SODIUM [Suspect]
     Active Substance: WARFARIN SODIUM
     Route: 048
  350. WARFARIN SODIUM [Suspect]
     Active Substance: WARFARIN SODIUM
     Route: 065
  351. WARFARIN SODIUM [Suspect]
     Active Substance: WARFARIN SODIUM
     Route: 065
  352. WARFARIN SODIUM [Suspect]
     Active Substance: WARFARIN SODIUM
     Route: 048
  353. WARFARIN SODIUM [Suspect]
     Active Substance: WARFARIN SODIUM
     Route: 065
  354. WARFARIN SODIUM [Suspect]
     Active Substance: WARFARIN SODIUM
     Route: 048
  355. WARFARIN SODIUM [Suspect]
     Active Substance: WARFARIN SODIUM
     Route: 065
  356. WARFARIN SODIUM [Suspect]
     Active Substance: WARFARIN SODIUM
     Route: 048
  357. ACETAMINOPHEN [Concomitant]
     Active Substance: ACETAMINOPHEN
     Indication: Product used for unknown indication
     Route: 065
  358. ALGINIC ACID [Concomitant]
     Active Substance: ALGINIC ACID
     Indication: Product used for unknown indication
     Route: 065
  359. ALUMINUM HYDROXIDE\SODIUM ALGINATE [Concomitant]
     Active Substance: ALUMINUM HYDROXIDE\SODIUM ALGINATE
     Indication: Product used for unknown indication
     Route: 065
  360. AMLODIPINE [Concomitant]
     Active Substance: AMLODIPINE BESYLATE
     Indication: Product used for unknown indication
     Route: 065
  361. AMLODIPINE [Concomitant]
     Active Substance: AMLODIPINE BESYLATE
     Route: 065
  362. AMLODIPINE [Concomitant]
     Active Substance: AMLODIPINE BESYLATE
     Indication: Product used for unknown indication
     Route: 065
  363. AMLODIPINE BESYLATE [Concomitant]
     Active Substance: AMLODIPINE BESYLATE
     Indication: Product used for unknown indication
     Route: 065
  364. ATORVASTATIN CALCIUM [Concomitant]
     Active Substance: ATORVASTATIN CALCIUM
     Indication: Product used for unknown indication
     Route: 065
  365. ATORVASTATIN CALCIUM [Concomitant]
     Active Substance: ATORVASTATIN CALCIUM
     Indication: Product used for unknown indication
     Route: 065
  366. ATORVASTATIN CALCIUM [Concomitant]
     Active Substance: ATORVASTATIN CALCIUM
     Indication: Product used for unknown indication
     Route: 065
  367. BETNOVATE [Concomitant]
     Active Substance: BETAMETHASONE
     Indication: Product used for unknown indication
     Route: 065
  368. BISOPROLOL [Concomitant]
     Active Substance: BISOPROLOL
     Indication: Product used for unknown indication
     Route: 065
  369. CALCIUM CARBONATE [Concomitant]
     Active Substance: CALCIUM CARBONATE
     Indication: Product used for unknown indication
     Route: 065
  370. CALCIUM CARBONATE [Concomitant]
     Active Substance: CALCIUM CARBONATE
     Indication: Product used for unknown indication
     Route: 065
  371. CALCIUM CARBONATE [Concomitant]
     Active Substance: CALCIUM CARBONATE
     Route: 065
  372. CALCIUM CARBONATE [Concomitant]
     Active Substance: CALCIUM CARBONATE
     Route: 065
  373. CALCIUM CARBONATE [Concomitant]
     Active Substance: CALCIUM CARBONATE
     Route: 065
  374. CALCIUM CARBONATE [Concomitant]
     Active Substance: CALCIUM CARBONATE
     Route: 065
  375. CALCIUM CARBONATE\CHOLECALCIFEROL [Concomitant]
     Active Substance: CALCIUM CARBONATE\CHOLECALCIFEROL
     Indication: Product used for unknown indication
     Route: 065
  376. CALCIUM CARBONATE\CHOLECALCIFEROL [Concomitant]
     Active Substance: CALCIUM CARBONATE\CHOLECALCIFEROL
     Route: 065
  377. CITALOPRAM HYDROBROMIDE [Concomitant]
     Active Substance: CITALOPRAM HYDROBROMIDE
     Indication: Product used for unknown indication
     Route: 065
  378. CLOBETASONE BUTYRATE [Concomitant]
     Active Substance: CLOBETASONE BUTYRATE
     Indication: Ill-defined disorder
     Route: 065
  379. CLOBETASONE BUTYRATE [Concomitant]
     Active Substance: CLOBETASONE BUTYRATE
     Route: 065
  380. CLOBETASONE BUTYRATE [Concomitant]
     Active Substance: CLOBETASONE BUTYRATE
     Route: 065
  381. DORZOLAMIDE [Concomitant]
     Active Substance: DORZOLAMIDE
     Indication: Product used for unknown indication
     Route: 065
  382. EMPAGLIFLOZIN [Concomitant]
     Active Substance: EMPAGLIFLOZIN
     Indication: Ill-defined disorder
     Route: 065
  383. FESOTERODINE FUMARATE [Concomitant]
     Active Substance: FESOTERODINE FUMARATE
     Indication: Product used for unknown indication
     Route: 065
  384. FOLIC ACID [Concomitant]
     Active Substance: FOLIC ACID
     Indication: Product used for unknown indication
     Route: 065
  385. INFLIXIMAB [Concomitant]
     Active Substance: INFLIXIMAB
     Indication: Crohn^s disease
     Route: 065
  386. LANSOPRAZOLE [Concomitant]
     Active Substance: LANSOPRAZOLE
     Indication: Product used for unknown indication
     Route: 065
  387. LATANOPROST [Concomitant]
     Active Substance: LATANOPROST
     Indication: Product used for unknown indication
     Route: 065
  388. LATANOPROST [Concomitant]
     Active Substance: LATANOPROST
     Route: 065
  389. LATANOPROST [Concomitant]
     Active Substance: LATANOPROST
     Route: 065
  390. LATANOPROST [Concomitant]
     Active Substance: LATANOPROST
     Route: 065
  391. LATANOPROST [Concomitant]
     Active Substance: LATANOPROST
     Route: 065
  392. LATANOPROST [Concomitant]
     Active Substance: LATANOPROST
     Indication: Product used for unknown indication
     Route: 065
  393. LYRICA [Concomitant]
     Active Substance: PREGABALIN
     Indication: Product used for unknown indication
     Route: 065
  394. POLYETHYLENE GLYCOLS [Concomitant]
     Active Substance: POLYETHYLENE GLYCOLS
     Indication: Product used for unknown indication
     Route: 065
  395. POLYETHYLENE GLYCOL 3350\POTASSIUM CHLORIDE\SODIUM BICARBONATE\SODIUM [Suspect]
     Active Substance: POLYETHYLENE GLYCOL 3350\POTASSIUM CHLORIDE\SODIUM BICARBONATE\SODIUM CHLORIDE\SODIUM SULFATE
     Indication: Product used for unknown indication
     Route: 065
  396. POLYETHYLENE GLYCOL 3350\POTASSIUM CHLORIDE\SODIUM BICARBONATE\SODIUM [Suspect]
     Active Substance: POLYETHYLENE GLYCOL 3350\POTASSIUM CHLORIDE\SODIUM BICARBONATE\SODIUM CHLORIDE\SODIUM SULFATE
     Route: 065
  397. POLYETHYLENE GLYCOL 3350\POTASSIUM CHLORIDE\SODIUM BICARBONATE\SODIUM [Suspect]
     Active Substance: POLYETHYLENE GLYCOL 3350\POTASSIUM CHLORIDE\SODIUM BICARBONATE\SODIUM CHLORIDE\SODIUM SULFATE
     Route: 065
  398. POLYETHYLENE GLYCOL 3350\POTASSIUM CHLORIDE\SODIUM BICARBONATE\SODIUM [Suspect]
     Active Substance: POLYETHYLENE GLYCOL 3350\POTASSIUM CHLORIDE\SODIUM BICARBONATE\SODIUM CHLORIDE\SODIUM SULFATE
     Route: 065
  399. POLYETHYLENE GLYCOL 3350\POTASSIUM CHLORIDE\SODIUM BICARBONATE\SODIUM [Suspect]
     Active Substance: POLYETHYLENE GLYCOL 3350\POTASSIUM CHLORIDE\SODIUM BICARBONATE\SODIUM CHLORIDE\SODIUM SULFATE
     Route: 065
  400. POLYETHYLENE GLYCOL 3350\POTASSIUM CHLORIDE\SODIUM BICARBONATE\SODIUM [Suspect]
     Active Substance: POLYETHYLENE GLYCOL 3350\POTASSIUM CHLORIDE\SODIUM BICARBONATE\SODIUM CHLORIDE\SODIUM SULFATE
     Route: 065
  401. POLYETHYLENE GLYCOL 3350\POTASSIUM CHLORIDE\SODIUM BICARBONATE\SODIUM [Suspect]
     Active Substance: POLYETHYLENE GLYCOL 3350\POTASSIUM CHLORIDE\SODIUM BICARBONATE\SODIUM CHLORIDE\SODIUM SULFATE
     Route: 065

REACTIONS (56)
  - Abdominal discomfort [Not Recovered/Not Resolved]
  - Alcohol poisoning [Not Recovered/Not Resolved]
  - Arthritis [Not Recovered/Not Resolved]
  - Bronchiectasis [Not Recovered/Not Resolved]
  - Burns second degree [Not Recovered/Not Resolved]
  - Cardiac murmur [Not Recovered/Not Resolved]
  - Catarrh [Not Recovered/Not Resolved]
  - Colitis ulcerative [Not Recovered/Not Resolved]
  - Condition aggravated [Not Recovered/Not Resolved]
  - Confusional state [Not Recovered/Not Resolved]
  - Deep vein thrombosis [Not Recovered/Not Resolved]
  - Dysgeusia [Not Recovered/Not Resolved]
  - Frequent bowel movements [Not Recovered/Not Resolved]
  - Gingival pain [Not Recovered/Not Resolved]
  - Hypopnoea [Not Recovered/Not Resolved]
  - Impaired quality of life [Not Recovered/Not Resolved]
  - Impaired work ability [Not Recovered/Not Resolved]
  - Loss of personal independence in daily activities [Not Recovered/Not Resolved]
  - Nightmare [Not Recovered/Not Resolved]
  - Parosmia [Not Recovered/Not Resolved]
  - Somnolence [Not Recovered/Not Resolved]
  - Steroid dependence [Not Recovered/Not Resolved]
  - Stress [Not Recovered/Not Resolved]
  - Swollen tongue [Not Recovered/Not Resolved]
  - Tubulointerstitial nephritis [Not Recovered/Not Resolved]
  - Fatigue [Not Recovered/Not Resolved]
  - Weight decreased [Not Recovered/Not Resolved]
  - Pain in extremity [Not Recovered/Not Resolved]
  - Palpitations [Not Recovered/Not Resolved]
  - Pain [Not Recovered/Not Resolved]
  - Tinnitus [Not Recovered/Not Resolved]
  - Vertigo [Not Recovered/Not Resolved]
  - Adverse drug reaction [Not Recovered/Not Resolved]
  - COVID-19 [Not Recovered/Not Resolved]
  - Rash [Not Recovered/Not Resolved]
  - Depression [Not Recovered/Not Resolved]
  - Rectal haemorrhage [Not Recovered/Not Resolved]
  - Eczema [Not Recovered/Not Resolved]
  - Haematochezia [Not Recovered/Not Resolved]
  - Headache [Not Recovered/Not Resolved]
  - Rhinitis [Not Recovered/Not Resolved]
  - Migraine [Not Recovered/Not Resolved]
  - Cerebrovascular accident [Not Recovered/Not Resolved]
  - Pulmonary embolism [Not Recovered/Not Resolved]
  - Systemic lupus erythematosus [Not Recovered/Not Resolved]
  - Pyrexia [Not Recovered/Not Resolved]
  - Accidental overdose [Not Recovered/Not Resolved]
  - Off label use [Not Recovered/Not Resolved]
  - Inappropriate schedule of product administration [Not Recovered/Not Resolved]
  - Drug ineffective [Not Recovered/Not Resolved]
  - Intentional product use issue [Not Recovered/Not Resolved]
  - Product use in unapproved indication [Not Recovered/Not Resolved]
  - Medication error [Not Recovered/Not Resolved]
  - Intentional product use issue [Unknown]
  - Intentional product use issue [Unknown]
  - Intentional product use issue [Unknown]
